FAERS Safety Report 7423789-6 (Version None)
Quarter: 2011Q2

REPORT INFORMATION
  Report Type: 
  Country: None (occurrence: None)
  Receive Date: 20110411
  Receipt Date: 20110328
  Transmission Date: 20111010
  Serious: Yes (Hospitalization)
  Sender: FDA-Public Use
  Company Number: 029384

PATIENT
  Sex: Male

DRUGS (6)
  1. LACTULOSE [Concomitant]
  2. BISOPROLOL FUMARATE [Concomitant]
  3. NEUPRO [Suspect]
     Indication: PARKINSON'S DISEASE
     Dosage: 1 MG QD, TRANSDERMAL
     Route: 062
     Dates: start: 20110127, end: 20110219
  4. RAMIPRIL [Concomitant]
  5. PANTOZOL [Concomitant]
  6. LEVODOPA [Concomitant]

REACTIONS (3)
  - BLOOD GLUCOSE INCREASED [None]
  - PANCREATITIS ACUTE [None]
  - URINE ANALYSIS ABNORMAL [None]
